FAERS Safety Report 8508930-6 (Version None)
Quarter: 2012Q3

REPORT INFORMATION
  Report Type: 
  Country: None (occurrence: None)
  Receive Date: 20120703
  Receipt Date: 20120625
  Transmission Date: 20120928
  Serious: Yes (Hospitalization, Other)
  Sender: FDA-Public Use
  Company Number: AUR-APL-2012-02783

PATIENT
  Age: 58 Year
  Sex: Male

DRUGS (2)
  1. CARVEDILOL [Suspect]
     Indication: PRODUCT USED FOR UNKNOWN INDICATION
     Dosage: 6.25 MG/DAY
  2. DRONEDARONE HCL [Suspect]
     Indication: ATRIAL FIBRILLATION
     Dosage: 800 MG (400 MG, 2 IN 1 D), ORAL
     Route: 048

REACTIONS (7)
  - DIZZINESS [None]
  - CHEST PAIN [None]
  - SYNCOPE [None]
  - CONFUSIONAL STATE [None]
  - BRADYCARDIA [None]
  - ELECTROCARDIOGRAM QT PROLONGED [None]
  - BLOOD PRESSURE INCREASED [None]
